FAERS Safety Report 8401548-5 (Version None)
Quarter: 2012Q2

REPORT INFORMATION
  Report Type: 
  Country: None (occurrence: None)
  Receive Date: 20120525
  Receipt Date: 20120514
  Transmission Date: 20120825
  Serious: Yes (Death, Hospitalization, Other)
  Sender: FDA-Public Use
  Company Number: 2012P1026616

PATIENT
  Age: 41 Year
  Sex: Female

DRUGS (1)
  1. AMOXICILLIN [Suspect]

REACTIONS (9)
  - PSEUDOMONAS TEST POSITIVE [None]
  - LUNG INFILTRATION [None]
  - TOXIC EPIDERMAL NECROLYSIS [None]
  - RESPIRATORY DISTRESS [None]
  - SYSTEMIC INFLAMMATORY RESPONSE SYNDROME [None]
  - PYREXIA [None]
  - BURNS THIRD DEGREE [None]
  - SEPSIS [None]
  - BURNS SECOND DEGREE [None]
